FAERS Safety Report 12988052 (Version 3)
Quarter: 2016Q4

REPORT INFORMATION
  Report Type: Report from Study
  Country: CA (occurrence: CA)
  Receive Date: 20161130
  Receipt Date: 20161216
  Transmission Date: 20170207
  Serious: No
  Sender: FDA-Public Use
  Company Number: CA-SA-2016SA218447

PATIENT
  Age: 24 Year
  Sex: Female

DRUGS (9)
  1. LEMTRADA [Suspect]
     Active Substance: ALEMTUZUMAB
     Indication: RELAPSING-REMITTING MULTIPLE SCLEROSIS
     Route: 041
     Dates: start: 20161129, end: 20161129
  2. BENADRYL [Suspect]
     Active Substance: DIPHENHYDRAMINE HYDROCHLORIDE
     Indication: PREMEDICATION
     Route: 042
     Dates: start: 20161125
  3. ACYCLOVIR. [Concomitant]
     Active Substance: ACYCLOVIR
     Route: 048
     Dates: start: 20161121
  4. REACTINE [Concomitant]
     Active Substance: CETIRIZINE HYDROCHLORIDE
     Indication: PREMEDICATION
     Route: 048
     Dates: start: 20161121, end: 20161129
  5. METHYLPREDNISOLONE. [Concomitant]
     Active Substance: METHYLPREDNISOLONE
     Indication: PREMEDICATION
     Dosage: 1GM X 3 DAYS
     Route: 042
     Dates: start: 20161121, end: 20161123
  6. ACETAMINOPHEN. [Concomitant]
     Active Substance: ACETAMINOPHEN
     Indication: PREMEDICATION
     Route: 048
     Dates: start: 20161121, end: 20161129
  7. RANITIDINE. [Concomitant]
     Active Substance: RANITIDINE
     Indication: PREMEDICATION
     Route: 048
     Dates: start: 20161121, end: 20161129
  8. METHYLPREDNISOLONE. [Concomitant]
     Active Substance: METHYLPREDNISOLONE
     Indication: PREMEDICATION
     Dosage: 1GM X 3 DAYS
     Route: 042
     Dates: start: 20161125, end: 20161129
  9. LEMTRADA [Suspect]
     Active Substance: ALEMTUZUMAB
     Indication: RELAPSING-REMITTING MULTIPLE SCLEROSIS
     Route: 041
     Dates: start: 20161121, end: 20161124

REACTIONS (14)
  - Chest discomfort [Recovered/Resolved]
  - Dizziness [Recovered/Resolved]
  - Fatigue [Not Recovered/Not Resolved]
  - Abdominal distension [Recovered/Resolved]
  - Rash [Recovered/Resolved]
  - Pharyngeal oedema [Recovered/Resolved]
  - Swelling [Not Recovered/Not Resolved]
  - Dysphagia [Recovered/Resolved]
  - Abdominal discomfort [Not Recovered/Not Resolved]
  - Swelling face [Not Recovered/Not Resolved]
  - Heart rate increased [Recovered/Resolved]
  - Peripheral swelling [Not Recovered/Not Resolved]
  - Dyspepsia [Not Recovered/Not Resolved]
  - Local swelling [Unknown]

NARRATIVE: CASE EVENT DATE: 2016
